FAERS Safety Report 6151756-1 (Version None)
Quarter: 2009Q2

REPORT INFORMATION
  Report Type: 
  Country: None (occurrence: None)
  Receive Date: 20090410
  Receipt Date: 20090406
  Transmission Date: 20091009
  Serious: Yes (Other)
  Sender: FDA-Public Use
  Company Number: A0778008A

PATIENT
  Sex: Male
  Weight: 12 kg

DRUGS (4)
  1. SERETIDE [Suspect]
     Dosage: 1PUFF TWICE PER DAY
     Route: 065
     Dates: start: 20090311, end: 20090331
  2. AEROLIN [Concomitant]
     Dosage: 3PUFF SIX TIMES PER DAY
     Dates: start: 20090313
  3. PREDSIM [Concomitant]
     Dosage: 3ML TWICE PER DAY
     Dates: start: 20090307, end: 20090328
  4. AMOXICILLIN [Concomitant]
     Dosage: 3ML TWICE PER DAY
     Dates: start: 20090319, end: 20090325

REACTIONS (3)
  - ASTHMA [None]
  - DYSPNOEA [None]
  - RALES [None]
